FAERS Safety Report 9333440 (Version 1)
Quarter: 2013Q2

REPORT INFORMATION
  Report Type: Spontaneous
  Country: GB (occurrence: GB)
  Receive Date: 20130606
  Receipt Date: 20130606
  Transmission Date: 20140414
  Serious: Yes (Other)
  Sender: FDA-Public Use
  Company Number: GB-TEVA-410192ISR

PATIENT
  Age: 87 Year
  Sex: Female
  Weight: 120.94 kg

DRUGS (8)
  1. AMLODIPINE [Suspect]
     Dates: start: 20130430
  2. PROCHLORPERAZINE [Concomitant]
     Dates: start: 20120624
  3. LEVOTHYROXINE [Concomitant]
     Dates: start: 20130220
  4. ASPIRIN [Concomitant]
     Dates: start: 20130220
  5. BISOPROLOL [Concomitant]
     Dates: start: 20130220
  6. FLUCLOXACILLIN [Concomitant]
     Dates: start: 20130405, end: 20130412
  7. PARACETAMOL [Concomitant]
     Dates: start: 20130415, end: 20130427
  8. FENBID [Concomitant]
     Dates: start: 20130415, end: 20130429

REACTIONS (1)
  - Dyspepsia [Recovered/Resolved]
